FAERS Safety Report 10021488 (Version 1)
Quarter: 2014Q1

REPORT INFORMATION
  Report Type: Spontaneous
  Country: US (occurrence: None)
  Receive Date: 20140318
  Receipt Date: 20140318
  Transmission Date: 20141002
  Serious: Yes (Other)
  Sender: FDA-Public Use
  Company Number: None

PATIENT
  Age: 40 Year
  Sex: Female
  Weight: 108.86 kg

DRUGS (4)
  1. NORCO [Suspect]
     Indication: NEUROPATHY PERIPHERAL
     Route: 048
     Dates: start: 20140221, end: 20140313
  2. NORCO [Suspect]
     Indication: BACK PAIN
     Route: 048
     Dates: start: 20140221, end: 20140313
  3. HYDROCODONE [Suspect]
     Indication: BACK PAIN
     Dates: start: 20140314, end: 20140314
  4. HYDROCODONE [Suspect]
     Indication: NEUROPATHY PERIPHERAL
     Dates: start: 20140314, end: 20140314

REACTIONS (3)
  - Headache [None]
  - Product substitution issue [None]
  - Drug ineffective [None]
